FAERS Safety Report 17334622 (Version 1)
Quarter: 2020Q1

REPORT INFORMATION
  Report Type: Spontaneous
  Country: US (occurrence: US)
  Receive Date: 20200128
  Receipt Date: 20200128
  Transmission Date: 20200409
  Serious: No
  Sender: FDA-Public Use
  Company Number: US-GE HEALTHCARE LIFE SCIENCES-2019CSU004269

PATIENT
  Age: 35 Year
  Sex: Female

DRUGS (3)
  1. VISIPAQUE [Suspect]
     Active Substance: IODIXANOL
     Indication: COMPUTERISED TOMOGRAM
     Dosage: 100 ML, SINGLE
     Route: 042
     Dates: start: 20190816, end: 20190816
  2. VISIPAQUE [Suspect]
     Active Substance: IODIXANOL
     Indication: DIZZINESS
  3. VISIPAQUE [Suspect]
     Active Substance: IODIXANOL
     Indication: HEADACHE

REACTIONS (2)
  - Throat irritation [Recovering/Resolving]
  - Oral pruritus [Recovering/Resolving]

NARRATIVE: CASE EVENT DATE: 20190816
